FAERS Safety Report 5108767-4 (Version None)
Quarter: 2006Q3

REPORT INFORMATION
  Report Type: 
  Country: None (occurrence: None)
  Receive Date: 20060920
  Receipt Date: 20060907
  Transmission Date: 20061208
  Serious: Yes (Other)
  Sender: FDA-Public Use
  Company Number: PHBS2006DK13794

PATIENT
  Age: 41 Year
  Sex: Female
  Weight: 62 kg

DRUGS (1)
  1. METHERGINE [Suspect]
     Indication: VAGINAL HAEMORRHAGE
     Route: 048
     Dates: start: 20060509, end: 20060511

REACTIONS (4)
  - ANXIETY [None]
  - ARRHYTHMIA [None]
  - DISCOMFORT [None]
  - HALLUCINATION [None]
